FAERS Safety Report 7455072-7 (Version None)
Quarter: 2011Q2

REPORT INFORMATION
  Report Type: 
  Country: None (occurrence: None)
  Receive Date: 20110503
  Receipt Date: 20110429
  Transmission Date: 20111010
  Serious: Yes (Other)
  Sender: FDA-Public Use
  Company Number: SG-PFIZER INC-2011093327

PATIENT
  Age: 80 Year
  Sex: Male

DRUGS (2)
  1. OMEPRAZOLE [Suspect]
     Dosage: UNK
  2. PHENYTOIN [Suspect]
     Dosage: UNK

REACTIONS (2)
  - RASH MACULO-PAPULAR [None]
  - DRUG ERUPTION [None]
